FAERS Safety Report 5311153-5 (Version None)
Quarter: 2007Q2

REPORT INFORMATION
  Report Type: 
  Country: None (occurrence: None)
  Receive Date: 20070430
  Receipt Date: 20070416
  Transmission Date: 20071010
  Serious: Yes (Other)
  Sender: FDA-Public Use
  Company Number: JP-ROCHE-487472

PATIENT
  Age: 4 Year
  Sex: Female
  Weight: 17 kg

DRUGS (3)
  1. TAMIFLU [Suspect]
     Dosage: FORM REPORTED AS DRY SYRUP.
     Route: 048
     Dates: start: 20070228, end: 20070228
  2. CALONAL [Concomitant]
     Route: 048
  3. SOLULACT [Concomitant]
     Dosage: DOSE AND FORM REPORTED AS INJECTABLE.
     Route: 050
     Dates: start: 20070228, end: 20070228

REACTIONS (1)
  - CONVULSION [None]
